FAERS Safety Report 6788955-1 (Version None)
Quarter: 2010Q2

REPORT INFORMATION
  Report Type: 
  Country: None (occurrence: None)
  Receive Date: 20100623
  Receipt Date: 20100614
  Transmission Date: 20101027
  Serious: Yes (Hospitalization, Other)
  Sender: FDA-Public Use
  Company Number: GB-AMGEN-QUU411509

PATIENT
  Sex: Male

DRUGS (14)
  1. ENBREL [Suspect]
     Indication: RHEUMATOID ARTHRITIS
     Dosage: 50 MG, FREQUENCY UNSPECIFIED
     Route: 058
     Dates: start: 20100429, end: 20100510
  2. CLOPIDOGREL [Concomitant]
     Route: 048
  3. GABAPENTIN [Concomitant]
     Route: 048
  4. ATORVASTATIN [Concomitant]
     Route: 048
  5. ISOSORBIDE MONONITRATE [Concomitant]
     Route: 048
  6. PREDNISOLONE [Concomitant]
     Dosage: UNKNOWN
  7. OXYBUTYNIN CHLORIDE [Concomitant]
     Route: 048
  8. METHOTREXATE [Concomitant]
     Route: 048
  9. CALCICHEW-D3 [Concomitant]
     Route: 048
  10. LISINOPRIL [Concomitant]
     Route: 048
  11. RANITIDINE [Concomitant]
     Route: 048
  12. FOLIC ACID [Concomitant]
     Route: 048
  13. ACETAMINOPHEN AND CODEINE PHOSPHATE [Concomitant]
     Route: 048
  14. DILTIAZEM HCL [Concomitant]
     Route: 048

REACTIONS (6)
  - CONFUSIONAL STATE [None]
  - DIZZINESS [None]
  - DYSPNOEA [None]
  - FEELING HOT [None]
  - INFECTION [None]
  - MALAISE [None]
